FAERS Safety Report 15255214 (Version 1)
Quarter: 2018Q3

REPORT INFORMATION
  Report Type: Spontaneous
  Country: US (occurrence: US)
  Receive Date: 20180808
  Receipt Date: 20180808
  Transmission Date: 20181010
  Serious: Yes (Other)
  Sender: FDA-Public Use
  Company Number: US-IMPAX LABORATORIES, INC-2018-IPXL-02620

PATIENT
  Age: 77 Year
  Sex: Male

DRUGS (2)
  1. RYTARY [Suspect]
     Active Substance: CARBIDOPA\LEVODOPA
     Indication: PRODUCT USED FOR UNKNOWN INDICATION
     Dosage: 48.75/195 MG, ONE CAPSULES FIVE TIMES DAILY ( 5 AM, 9 AM, 1 PM, 5 PM, 9 PM)
     Route: 065
  2. RYTARY [Suspect]
     Active Substance: CARBIDOPA\LEVODOPA
     Dosage: 61.25/ 245 MG, ONE CAPSULES FIVE TIMES DAILY (5 AM, 9 AM, 1 PM, 5 PM, 9 PM)
     Route: 065

REACTIONS (1)
  - Deep brain stimulation [Unknown]
